FAERS Safety Report 25795698 (Version 1)
Quarter: 2025Q3

REPORT INFORMATION
  Report Type: Spontaneous
  Country: US (occurrence: US)
  Receive Date: 20250912
  Receipt Date: 20250912
  Transmission Date: 20251021
  Serious: No
  Sender: MERCK SHARP & DOHME LLC
  Company Number: US-009507513-2324279

PATIENT
  Age: 63 Year
  Sex: Male

DRUGS (4)
  1. IVERMECTIN [Suspect]
     Active Substance: IVERMECTIN
     Indication: Strongyloidiasis
     Route: 048
  2. IVERMECTIN [Suspect]
     Active Substance: IVERMECTIN
     Indication: Strongyloidiasis
     Route: 054
  3. trimethoprim-sulfamethoxazole (TMP/SMX) [Concomitant]
     Indication: Prophylaxis
     Dosage: SINGLE-STRENGTH DAILY
  4. ERTAPENEM [Concomitant]
     Active Substance: ERTAPENEM
     Indication: Escherichia infection

REACTIONS (1)
  - Product use in unapproved indication [Unknown]
